FAERS Safety Report 9014060 (Version 2)
Quarter: 2013Q1

REPORT INFORMATION
  Report Type: Spontaneous
  Country: FR (occurrence: FR)
  Receive Date: 20130115
  Receipt Date: 20130212
  Transmission Date: 20140127
  Serious: Yes (Death)
  Sender: FDA-Public Use
  Company Number: FR-ROCHE-1179016

PATIENT
  Age: 50 Year
  Sex: Male

DRUGS (5)
  1. ROFERON-A [Suspect]
     Indication: METASTATIC MALIGNANT MELANOMA
     Dosage: DOSE: 9 MILLION OF IU WEEKLY
     Route: 065
     Dates: start: 201212
  2. SIMVASTATIN [Concomitant]
  3. MICARDIS [Concomitant]
  4. SERTRALINE [Concomitant]
  5. ZARZIO [Concomitant]

REACTIONS (2)
  - Death [Fatal]
  - Expired drug administered [Unknown]
